FAERS Safety Report 13579929 (Version 1)
Quarter: 2017Q2

REPORT INFORMATION
  Report Type: Spontaneous
  Country: US (occurrence: US)
  Receive Date: 20170525
  Receipt Date: 20170525
  Transmission Date: 20170830
  Serious: Yes (Hospitalization)
  Sender: FDA-Public Use
  Company Number: PHEH2017US015336

PATIENT
  Sex: Male

DRUGS (1)
  1. AFINITOR [Suspect]
     Active Substance: EVEROLIMUS
     Indication: CARCINOID TUMOUR
     Route: 048

REACTIONS (7)
  - Burning sensation [Unknown]
  - Hyperglycaemia [Unknown]
  - Abdominal abscess [Unknown]
  - Flushing [Unknown]
  - Dyspnoea [Unknown]
  - Diarrhoea [Unknown]
  - Intestinal perforation [Unknown]
